FAERS Safety Report 10906498 (Version 4)
Quarter: 2016Q1

REPORT INFORMATION
  Report Type: Report from Study
  Country: US (occurrence: US)
  Receive Date: 20150312
  Receipt Date: 20160210
  Transmission Date: 20160525
  Serious: Yes (Other)
  Sender: FDA-Public Use
  Company Number: US-UCBSA-2015001084

PATIENT
  Age: 9 Year
  Sex: Female

DRUGS (5)
  1. ONFI [Concomitant]
     Active Substance: CLOBAZAM
     Indication: PRODUCT USED FOR UNKNOWN INDICATION
     Dosage: UNK, 2X/DAY (BID)
  2. LEVETIRACETAM. [Suspect]
     Active Substance: LEVETIRACETAM
     Indication: SEIZURE
     Dosage: 8 ML, 2X/DAY (BID)
  3. KEPPRA [Suspect]
     Active Substance: LEVETIRACETAM
     Indication: SEIZURE
     Dosage: 1000 MG, 2X/DAY (BID)
     Dates: start: 201411
  4. KEPPRA [Suspect]
     Active Substance: LEVETIRACETAM
     Dosage: 1500 MG, 2X/DAY (BID)
  5. KEPPRA [Suspect]
     Active Substance: LEVETIRACETAM
     Dosage: 1750 MG, 2X/DAY (BID)

REACTIONS (14)
  - Dyspnoea [Unknown]
  - Off label use [Unknown]
  - Seizure [Unknown]
  - Anger [Unknown]
  - Gastrointestinal disorder [Unknown]
  - Personality change [Unknown]
  - Heart rate increased [Unknown]
  - Overdose [Unknown]
  - Aggression [Unknown]
  - Depressed mood [Unknown]
  - Fatigue [Unknown]
  - Fear [Unknown]
  - Mood swings [Unknown]
  - Crying [Unknown]
